FAERS Safety Report 14840477 (Version 2)
Quarter: 2020Q4

REPORT INFORMATION
  Report Type: Other
  Country: CA (occurrence: CA)
  Receive Date: 20180503
  Receipt Date: 20201124
  Transmission Date: 20210113
  Serious: Yes (Life-Threatening, Other)
  Sender: FDA-Public Use
  Company Number: CA-APOTEX-2018AP011326

PATIENT
  Age: 58 Year
  Sex: Female

DRUGS (1)
  1. GABAPENTIN. [Suspect]
     Active Substance: GABAPENTIN
     Indication: NEURALGIA
     Dosage: 200 MG, TID
     Route: 048

REACTIONS (5)
  - Product use in unapproved indication [Recovered/Resolved]
  - Cardiac murmur [Recovered/Resolved]
  - Off label use [Recovered/Resolved]
  - Suicidal ideation [Recovered/Resolved]
  - Ataxia [Recovered/Resolved]
